FAERS Safety Report 13297635 (Version 4)
Quarter: 2017Q3

REPORT INFORMATION
  Report Type: Spontaneous
  Country: US (occurrence: US)
  Receive Date: 20170306
  Receipt Date: 20170814
  Transmission Date: 20171127
  Serious: Yes (Death, Hospitalization, Other)
  Sender: FDA-Public Use
  Company Number: US-PFIZER INC-2017091835

PATIENT
  Age: 81 Year
  Sex: Male

DRUGS (10)
  1. TOVIAZ [Suspect]
     Active Substance: FESOTERODINE FUMARATE
     Indication: DYSURIA
  2. COUMADIN [Suspect]
     Active Substance: WARFARIN SODIUM
     Indication: HEART VALVE REPLACEMENT
     Dosage: 5 MG, ALTERNATE DAY(MONDAY/WEDNESDAY/FRIDAY/SATURDAY)
  3. TOPAMAX [Concomitant]
     Active Substance: TOPIRAMATE
     Indication: SEIZURE
     Dosage: 150 MG, DAILY (50 MG IN THE MORNING AND 100 MG AT NIGHT)
  4. VITAMIN B COMPLEX [Concomitant]
     Active Substance: CYANOCOBALAMIN\DEXPANTHENOL\NIACINAMIDE\PYRIDOXINE HYDROCHLORIDE\RIBOFLAVIN 5^-PHOSPHATE SODIUM\THIAMINE HYDROCHLORIDE\VITAMIN B COMPLEX
     Dosage: UNK
  5. COUMADIN [Suspect]
     Active Substance: WARFARIN SODIUM
     Dosage: 7.5 MG, ALTERNATE DAY (ON SUNDAY TUESDAY AND THURSDAY)
  6. STRIVERDI RESPIMAT [Concomitant]
     Active Substance: OLODATEROL HYDROCHLORIDE
     Indication: DYSPNOEA
     Dosage: 2 DF, 1X/DAY (MORNING)
  7. PROVENTIL [Concomitant]
     Active Substance: ALBUTEROL
     Indication: ASBESTOSIS
     Dosage: 2 DF, EVERY 4 HOURS AS NEEDED
  8. TOPAMAX [Concomitant]
     Active Substance: TOPIRAMATE
     Dosage: 150 MG, DAILY (50 MG IN THE MORNING AND 100 MG AT NIGHT)
  9. PROVENTIL [Concomitant]
     Active Substance: ALBUTEROL
     Indication: EMPHYSEMA
  10. TOVIAZ [Suspect]
     Active Substance: FESOTERODINE FUMARATE
     Indication: MICTURITION URGENCY
     Dosage: 4 MG, UNK
     Route: 048

REACTIONS (13)
  - Death [Fatal]
  - Dysphagia [Unknown]
  - Dysuria [Unknown]
  - Urinary tract infection [Unknown]
  - Drug ineffective [Unknown]
  - Dry mouth [Unknown]
  - Pain [Unknown]
  - Urinary retention [Unknown]
  - Chromaturia [Unknown]
  - Dyspnoea [Unknown]
  - Penile haemorrhage [Unknown]
  - Insomnia [Unknown]
  - Fatigue [Unknown]

NARRATIVE: CASE EVENT DATE: 20170227
